FAERS Safety Report 8900289 (Version 2)
Quarter: 2012Q4

REPORT INFORMATION
  Report Type: 
  Country: DE (occurrence: DE)
  Receive Date: 20121109
  Receipt Date: 20121121
  Transmission Date: 20130627
  Serious: Yes (Hospitalization, Other)
  Sender: FDA-Public Use
  Company Number: DE-JNJFOC-20121016499

PATIENT
  Sex: Female
  Weight: 3.3 kg

DRUGS (1)
  1. TOPIRAMATE [Suspect]
     Indication: FOETAL EXPOSURE DURING PREGNANCY
     Dosage: 50 mg -0-75 mg
     Route: 064

REACTIONS (3)
  - Grand mal convulsion [Recovered/Resolved]
  - Hypocalcaemia [Unknown]
  - Atrioventricular block [Not Recovered/Not Resolved]
